FAERS Safety Report 15392796 (Version 1)
Quarter: 2018Q4

REPORT INFORMATION
  Report Type: Spontaneous
  Country: ZA (occurrence: ZA)
  Receive Date: 20180917
  Receipt Date: 20180917
  Transmission Date: 20190204
  Serious: Yes (Other)
  Sender: FDA-Public Use
  Company Number: ZA-PFIZER INC-2018371862

PATIENT
  Age: 84 Year

DRUGS (11)
  1. SLOW MAG [MAGNESIUM CHLORIDE] [Suspect]
     Active Substance: MAGNESIUM CHLORIDE
     Dosage: 450 MG, UNK
  2. TRAMACET [Suspect]
     Active Substance: ACETAMINOPHEN\TRAMADOL
     Dosage: UNK
  3. LYRICA [Suspect]
     Active Substance: PREGABALIN
     Dosage: 25 MG, UNK
  4. TREPILINE [AMITRIPTYLINE HYDROCHLORIDE] [Suspect]
     Active Substance: AMITRIPTYLINE HYDROCHLORIDE
     Dosage: 25 MG, UNK
  5. FERRIMED [FERRIC HYDROXIDE POLYMALTOSE COMPLEX] [Suspect]
     Active Substance: IRON POLYMALTOSE
     Dosage: UNK
  6. BONIVA [Suspect]
     Active Substance: IBANDRONATE SODIUM
     Dosage: 150 MG, UNK
  7. DONECEPT [Suspect]
     Active Substance: DONEPEZIL HYDROCHLORIDE
     Dosage: 10 MG, UNK
  8. CIPLA-SIMVASTATIN [Suspect]
     Active Substance: SIMVASTATIN
     Dosage: 20 MG, UNK
  9. TAREG [Suspect]
     Active Substance: VALSARTAN
     Dosage: 160 MG, UNK
  10. STILNOX [Suspect]
     Active Substance: ZOLPIDEM TARTRATE
     Dosage: 12.5 MG, UNK
  11. CONCOR [Suspect]
     Active Substance: BISOPROLOL FUMARATE
     Dosage: 10 MG, UNK

REACTIONS (1)
  - Dementia [Not Recovered/Not Resolved]
